FAERS Safety Report 20921124 (Version 2)
Quarter: 2022Q3

REPORT INFORMATION
  Report Type: Spontaneous
  Country: US (occurrence: US)
  Receive Date: 20220606
  Receipt Date: 20220818
  Transmission Date: 20221026
  Serious: No
  Sender: FDA-Public Use
  Company Number: US-BRISTOL-MYERS SQUIBB COMPANY-2022-052553

PATIENT
  Age: 73 Year
  Sex: Female

DRUGS (1)
  1. REVLIMID [Suspect]
     Active Substance: LENALIDOMIDE
     Indication: Anaemia
     Dosage: DOSE: 25 MILLIGRAM, FREQ: TAKE 1 CAPSULE BY MOUTH EVERYDAY FOR 21 DAYS EVERY 28 DAY CYCLE
     Route: 048

REACTIONS (4)
  - Back pain [Recovered/Resolved]
  - Seasonal allergy [Recovered/Resolved]
  - Dry throat [Recovered/Resolved]
  - Intentional product use issue [Unknown]
